FAERS Safety Report 9205756 (Version 1)
Quarter: 2013Q2

REPORT INFORMATION
  Report Type: Spontaneous
  Country: AU (occurrence: None)
  Receive Date: 20130401
  Receipt Date: 20130401
  Transmission Date: 20140414
  Serious: Yes (Other)
  Sender: FDA-Public Use
  Company Number: THQ2013A01943

PATIENT
  Sex: Female

DRUGS (5)
  1. ZOTON [Suspect]
     Dosage: 60 MG (30 MG, 2 IN 1 D) PER ORAL
     Route: 048
  2. SIMVASTATIN [Concomitant]
  3. INDAPAMIDE W/PERINDOPRIL [Concomitant]
  4. WARFARIN [Concomitant]
  5. PREDNISONE [Concomitant]

REACTIONS (3)
  - Haemorrhage [None]
  - Iron deficiency [None]
  - Off label use [None]
